FAERS Safety Report 6089610-6 (Version None)
Quarter: 2009Q1

REPORT INFORMATION
  Report Type: 
  Country: None (occurrence: None)
  Receive Date: 20090224
  Receipt Date: 20090210
  Transmission Date: 20090719
  Serious: Yes (Hospitalization)
  Sender: FDA-Public Use
  Company Number: PHHY2009FR05002

PATIENT
  Sex: Female

DRUGS (1)
  1. TAREG [Suspect]
     Dosage: 40 MG, QD
     Route: 048
     Dates: start: 20081105, end: 20081208

REACTIONS (4)
  - HAEMATOMA [None]
  - PETECHIAE [None]
  - PLATELET COUNT DECREASED [None]
  - THROMBOCYTOPENIC PURPURA [None]
